FAERS Safety Report 5043216-6 (Version None)
Quarter: 2006Q3

REPORT INFORMATION
  Report Type: 
  Country: None (occurrence: None)
  Receive Date: 20060703
  Receipt Date: 20060703
  Transmission Date: 20061208
  Serious: Yes (Other)
  Sender: FDA-Public Use
  Company Number: None

PATIENT
  Age: 50 Year
  Sex: Male
  Weight: 70.3075 kg

DRUGS (1)
  1. LYRICA [Suspect]
     Indication: PAIN MANAGEMENT
     Dosage: 1 TABLET  TWICE DAILY  PO
     Route: 048
     Dates: start: 20060510, end: 20060510

REACTIONS (5)
  - COGNITIVE DISORDER [None]
  - CONFUSIONAL STATE [None]
  - DISSOCIATION [None]
  - DISTURBANCE IN ATTENTION [None]
  - PERFORMANCE STATUS DECREASED [None]
